FAERS Safety Report 16733220 (Version 1)
Quarter: 2019Q3

REPORT INFORMATION
  Report Type: Report from Study
  Country: DE (occurrence: DE)
  Receive Date: 20190823
  Receipt Date: 20190823
  Transmission Date: 20191005
  Serious: Yes (Other)
  Sender: FDA-Public Use
  Company Number: DE-ACCORD-152661

PATIENT
  Age: 7 Month
  Sex: Male
  Weight: 1.92 kg

DRUGS (5)
  1. PREGABALIN. [Concomitant]
     Active Substance: PREGABALIN
     Dosage: TOTAL: 750 (150-150-150-300),16-DEC-2014 TO 27-JUN-2015
     Route: 063
     Dates: start: 2015
  2. LACOSAMIDE. [Suspect]
     Active Substance: LACOSAMIDE
     Indication: PRODUCT USED FOR UNKNOWN INDICATION
     Dosage: 50 MG, 2X/DAY (BID) 50-0-50,15-DEC-2014,27-NOV-2014 TO 2014
     Route: 064
     Dates: start: 20141216, end: 20141218
  3. LACOSAMIDE. [Suspect]
     Active Substance: LACOSAMIDE
     Indication: PRODUCT USED FOR UNKNOWN INDICATION
     Dosage: 50 MG, 2X/DAY (BID) 50-0-50
     Route: 064
     Dates: start: 20141216, end: 20141218
  4. LACOSAMIDE. [Suspect]
     Active Substance: LACOSAMIDE
     Indication: EPILEPSY
     Dosage: 100 MG, 2X/DAY (BID)
     Route: 064
     Dates: start: 20141127, end: 2014
  5. LEVETIRACETAM. [Suspect]
     Active Substance: LEVETIRACETAM
     Indication: PRODUCT USED FOR UNKNOWN INDICATION
     Dosage: 1500 MG, 2X/DAY (BID) (1500-0-1500),6000 MG 16-DEC-2014 TO 27-JUN-2015.
     Route: 064
     Dates: start: 20141215, end: 20141215

REACTIONS (4)
  - Premature baby [Unknown]
  - Foetal exposure during pregnancy [Unknown]
  - Exposure via breast milk [Unknown]
  - Low birth weight baby [Unknown]

NARRATIVE: CASE EVENT DATE: 20141127
